FAERS Safety Report 7652909-3 (Version None)
Quarter: 2011Q3

REPORT INFORMATION
  Report Type: 
  Country: None (occurrence: None)
  Receive Date: 20110803
  Receipt Date: 20110729
  Transmission Date: 20111222
  Serious: Yes (Other)
  Sender: FDA-Public Use
  Company Number: US-BRACCO-003741

PATIENT
  Sex: Female
  Weight: 109 kg

DRUGS (47)
  1. EPOGEN [Concomitant]
  2. PREDNISONE [Concomitant]
  3. INSULIN [Concomitant]
  4. PHOSLO [Concomitant]
  5. TIMOLOL MALEATE [Concomitant]
  6. COLACE [Concomitant]
  7. FERROUS SULFATE TAB [Concomitant]
  8. MULTIHANCE [Suspect]
     Indication: NUCLEAR MAGNETIC RESONANCE IMAGING
     Route: 042
     Dates: start: 20050707, end: 20050707
  9. CONTRAST MEDIA [Suspect]
     Route: 065
     Dates: start: 19980706, end: 19980706
  10. NEPHROCAPS [Concomitant]
  11. PROGRAF [Concomitant]
  12. SYNTHROID [Concomitant]
  13. MIACALCIN [Concomitant]
  14. MULTIHANCE [Suspect]
     Indication: NUCLEAR MAGNETIC RESONANCE IMAGING ABDOMINAL
     Route: 042
     Dates: start: 20050707, end: 20050707
  15. ZEMPLAR [Concomitant]
  16. PLAVIX [Concomitant]
  17. MAGNEVIST [Suspect]
     Indication: NUCLEAR MAGNETIC RESONANCE IMAGING
     Route: 065
     Dates: start: 19980824, end: 19980824
  18. MAGNEVIST [Suspect]
     Route: 065
     Dates: start: 19980824, end: 19980824
  19. DIATX [Concomitant]
  20. PARICALCITOL [Concomitant]
  21. LORATADINE [Concomitant]
  22. RENAGEL [Concomitant]
  23. FLONASE [Concomitant]
  24. EPOGEN [Concomitant]
  25. RESTORIL [Concomitant]
  26. HOMATROPINE [Concomitant]
  27. ZOCOR [Concomitant]
  28. CELEBREX [Concomitant]
  29. ZOLOFT [Concomitant]
  30. CONTRAST MEDIA [Suspect]
     Indication: NUCLEAR MAGNETIC RESONANCE IMAGING
     Dosage: STATED BY PT IN A PHYSICIAN'S NOTE; NO RADIOLOGY REPORT; NOT STATED IN PFS; UNKNOWN
     Route: 065
     Dates: start: 20070801, end: 20070801
  31. LIPITOR [Concomitant]
  32. PERCOCET [Concomitant]
  33. CILOSTAZOL [Concomitant]
  34. ASPIRIN [Concomitant]
  35. CONTRAST MEDIA [Suspect]
     Indication: NUCLEAR MAGNETIC RESONANCE IMAGING BRAIN
     Route: 065
     Dates: start: 20020820, end: 20020820
  36. PRILOSEC [Concomitant]
  37. SENSIPAR [Concomitant]
  38. TEMAZEPAM [Concomitant]
  39. CELLCEPT [Concomitant]
     Indication: KIDNEY TRANSPLANT REJECTION
  40. EVISTA [Concomitant]
  41. LEVOTHYROXINE SODIUM [Concomitant]
  42. VISIPAQUE [Concomitant]
     Indication: AORTOGRAM
     Route: 065
     Dates: start: 20050616, end: 20050616
  43. MAGNEVIST [Suspect]
     Indication: ANGIOGRAM
     Route: 065
     Dates: start: 19980824, end: 19980824
  44. TRICOR [Concomitant]
  45. HUMALOG [Concomitant]
  46. IBUPROFEN [Concomitant]
  47. PROAMATINE [Concomitant]

REACTIONS (1)
  - NEPHROGENIC SYSTEMIC FIBROSIS [None]
